FAERS Safety Report 4969137-2 (Version None)
Quarter: 2006Q2

REPORT INFORMATION
  Report Type: 
  Country: None (occurrence: None)
  Receive Date: 20060411
  Receipt Date: 20050506
  Transmission Date: 20061013
  Serious: Yes (Other)
  Sender: FDA-Public Use
  Company Number: US-BRISTOL-MYERS SQUIBB COMPANY-12959458

PATIENT
  Age: 62 Year
  Sex: Female
  Weight: 47 kg

DRUGS (11)
  1. CARBOPLATIN [Suspect]
     Indication: ADENOCARCINOMA
     Route: 042
     Dates: start: 20050505, end: 20050505
  2. TAXOL [Concomitant]
     Indication: ADENOCARCINOMA
     Route: 042
     Dates: start: 20050505, end: 20050505
  3. BENADRYL [Concomitant]
     Indication: PREMEDICATION
     Route: 042
  4. DEXAMETHASONE [Concomitant]
     Indication: PREMEDICATION
     Route: 042
  5. REGLAN [Concomitant]
  6. OXYCONTIN [Concomitant]
  7. SENNA [Concomitant]
  8. DOCUSATE SODIUM [Concomitant]
  9. PHENERGAN HCL [Concomitant]
  10. ZOFRAN [Concomitant]
  11. IBUPROFEN [Concomitant]

REACTIONS (1)
  - INJECTION SITE REACTION [None]
